FAERS Safety Report 12543651 (Version 1)
Quarter: 2016Q3

REPORT INFORMATION
  Report Type: Spontaneous
  Country: US (occurrence: None)
  Receive Date: 20160708
  Receipt Date: 20160708
  Transmission Date: 20161109
  Serious: Yes (Other)
  Sender: FDA-Public Use
  Company Number: None

PATIENT
  Age: 48 Year
  Sex: Female
  Weight: 57.61 kg

DRUGS (1)
  1. PACLITAXEL, 300MG FRESENIUS KABI USA [Suspect]
     Active Substance: PACLITAXEL
     Indication: NON-SMALL CELL LUNG CANCER
     Dosage: 320 MG Q21D INTRAVENOUS DRIP
     Route: 041
     Dates: start: 20160707, end: 20160707

REACTIONS (4)
  - Dyspnoea [None]
  - Tachycardia [None]
  - Chest discomfort [None]
  - Blood pressure increased [None]

NARRATIVE: CASE EVENT DATE: 20160707
